FAERS Safety Report 10147465 (Version 1)
Quarter: 2014Q2

REPORT INFORMATION
  Report Type: Spontaneous
  Country: US (occurrence: US)
  Receive Date: 20140501
  Receipt Date: 20140501
  Transmission Date: 20141212
  Serious: No
  Sender: FDA-Public Use
  Company Number: US-ENDO PHARMACEUTICALS INC.-LEVX20140001

PATIENT
  Age: 56 Year
  Sex: Female

DRUGS (1)
  1. LEVETIRACETAM EXTENDED-RELEASE [Suspect]
     Indication: CONVULSION
     Route: 048
     Dates: start: 20140115

REACTIONS (1)
  - Medication residue present [Not Recovered/Not Resolved]
